FAERS Safety Report 22262541 (Version 1)
Quarter: 2023Q2

REPORT INFORMATION
  Report Type: Report from Study
  Country: US (occurrence: US)
  Receive Date: 20230428
  Receipt Date: 20230428
  Transmission Date: 20230722
  Serious: Yes (Other)
  Sender: FDA-Public Use
  Company Number: US-JNJFOC-20230449561

PATIENT
  Sex: Male

DRUGS (1)
  1. STELARA [Suspect]
     Active Substance: USTEKINUMAB
     Indication: Colitis ulcerative
     Route: 058
     Dates: start: 20230106

REACTIONS (3)
  - Atrial fibrillation [Unknown]
  - Gastric disorder [Unknown]
  - Malaise [Unknown]

NARRATIVE: CASE EVENT DATE: 20230101
